FAERS Safety Report 10073518 (Version 2)
Quarter: 2014Q2

REPORT INFORMATION
  Report Type: Report from Study
  Country: US (occurrence: US)
  Receive Date: 20140411
  Receipt Date: 20140502
  Transmission Date: 20141212
  Serious: Yes (Life-Threatening, Other)
  Sender: FDA-Public Use
  Company Number: US-JNJFOC-20140406692

PATIENT
  Age: 34 Year
  Sex: Male

DRUGS (7)
  1. NUCYNTA [Suspect]
     Indication: BACK PAIN
     Route: 048
  2. NUCYNTA [Suspect]
     Indication: BACK PAIN
     Route: 048
  3. HYDROCODONE [Suspect]
     Indication: PRODUCT USED FOR UNKNOWN INDICATION
     Route: 065
  4. TRAZODONE [Suspect]
     Indication: PRODUCT USED FOR UNKNOWN INDICATION
     Route: 065
  5. GABAPENTIN [Suspect]
     Indication: PRODUCT USED FOR UNKNOWN INDICATION
     Route: 065
  6. DULOXETINE [Suspect]
     Indication: PRODUCT USED FOR UNKNOWN INDICATION
     Route: 065
  7. OXCARBAZEPINE [Suspect]
     Indication: PRODUCT USED FOR UNKNOWN INDICATION
     Route: 065

REACTIONS (9)
  - Exposure to toxic agent [Unknown]
  - Overdose [Unknown]
  - Overdose [Unknown]
  - Drug dependence [Unknown]
  - Mental status changes [Unknown]
  - Somnolence [Unknown]
  - Lethargy [Unknown]
  - Emotional distress [Unknown]
  - Hypercapnia [Unknown]
